FAERS Safety Report 4265122-7 (Version None)
Quarter: 2004Q1

REPORT INFORMATION
  Report Type: 
  Country: None (occurrence: None)
  Receive Date: 20040106
  Receipt Date: 20040106
  Transmission Date: 20041129
  Serious: Yes (Hospitalization)
  Sender: FDA-Public Use
  Company Number: None

PATIENT
  Age: 74 Year
  Sex: Female
  Weight: 98 kg

DRUGS (8)
  1. AVANDIA [Suspect]
     Indication: DIABETES MELLITUS NON-INSULIN-DEPENDENT
     Dosage: 4 MG QD
  2. LASIX [Concomitant]
  3. PLAVIX [Concomitant]
  4. VERAPAMIL [Concomitant]
  5. K+ [Concomitant]
  6. TRICOR [Concomitant]
  7. EPOGEN [Concomitant]
  8. S.L. NTG [Concomitant]

REACTIONS (1)
  - GENERALISED OEDEMA [None]
